FAERS Safety Report 5106793-2 (Version None)
Quarter: 2006Q3

REPORT INFORMATION
  Report Type: 
  Country: None (occurrence: None)
  Receive Date: 20060918
  Receipt Date: 20060908
  Transmission Date: 20061208
  Serious: Yes (Life-Threatening, Hospitalization)
  Sender: FDA-Public Use
  Company Number: US-JNJFOC-20060803645

PATIENT
  Sex: Female
  Weight: 109.77 kg

DRUGS (10)
  1. REMICADE [Suspect]
     Indication: RHEUMATOID ARTHRITIS
     Dosage: 23 INFUSIONS
     Route: 042
  2. NAPROSYN [Concomitant]
  3. TYLENOL EXTRA STRENGTH [Concomitant]
     Dosage: 1 TO 2 TABLETS 4 TO 6 HOURS AS NEEDED
  4. VICODIN [Concomitant]
     Dosage: 500/5 1 TO 2 DAILY AS NEEDED
  5. DIAZIDE [Concomitant]
  6. WELLBUTRIN SR [Concomitant]
  7. ATIVAN [Concomitant]
  8. PEPCID AC [Concomitant]
  9. PREMPRO [Concomitant]
     Dosage: 0.3/1.5
  10. METHOTREXATE [Concomitant]

REACTIONS (1)
  - BREAST CANCER [None]
